FAERS Safety Report 8603893-7 (Version None)
Quarter: 2012Q3

REPORT INFORMATION
  Report Type: 
  Country: None (occurrence: None)
  Receive Date: 20120819
  Receipt Date: 20120815
  Transmission Date: 20120928
  Serious: Yes (Hospitalization, Other)
  Sender: FDA-Public Use
  Company Number: US-AMGEN-USASP2012040288

PATIENT
  Age: 87 Year
  Sex: Female
  Weight: 46.259 kg

DRUGS (8)
  1. CATAPRES                           /00171101/ [Concomitant]
  2. SYNTHROID [Concomitant]
  3. CALCIUM [Concomitant]
  4. TRAMADOL HCL [Concomitant]
  5. NORVASC [Concomitant]
  6. VITAMIN D [Concomitant]
  7. DIOVAN [Concomitant]
  8. PROLIA [Suspect]
     Indication: OSTEOPOROSIS POSTMENOPAUSAL
     Dosage: 60 MG, UNK
     Route: 030
     Dates: start: 20120319

REACTIONS (2)
  - RENAL FAILURE [None]
  - HYPOCALCAEMIA [None]
